FAERS Safety Report 5668932-4 (Version None)
Quarter: 2008Q1

REPORT INFORMATION
  Report Type: 
  Country: None (occurrence: None)
  Receive Date: 20080317
  Receipt Date: 20080312
  Transmission Date: 20080703
  Serious: Yes (Death)
  Sender: FDA-Public Use
  Company Number: ZA-AVENTIS-200811088EU

PATIENT
  Age: 58 Year
  Sex: Female

DRUGS (1)
  1. CLEXANE [Suspect]
     Route: 058
     Dates: start: 20080301, end: 20080301

REACTIONS (2)
  - DRUG INEFFECTIVE [None]
  - PULMONARY EMBOLISM [None]
